FAERS Safety Report 9903544 (Version 1)
Quarter: 2014Q1

REPORT INFORMATION
  Report Type: Report from Study
  Country: US (occurrence: US)
  Receive Date: 20140217
  Receipt Date: 20140217
  Transmission Date: 20141002
  Serious: Yes (Other)
  Sender: FDA-Public Use
  Company Number: US-ABBVIE-14P-163-1199695-00

PATIENT
  Sex: Female

DRUGS (10)
  1. HUMIRA [Suspect]
     Indication: RHEUMATOID ARTHRITIS
  2. HUMULIN R [Concomitant]
     Indication: PRODUCT USED FOR UNKNOWN INDICATION
  3. CLONIDINE [Concomitant]
     Indication: CARDIAC DISORDER
  4. NEXIUM [Concomitant]
     Indication: GASTROOESOPHAGEAL REFLUX DISEASE
  5. TRAZODONE [Concomitant]
     Indication: INSOMNIA
  6. LEVOTHYROXINE [Concomitant]
     Indication: HYPOTHYROIDISM
  7. GABAPENTIN [Concomitant]
     Indication: NEUROPATHY PERIPHERAL
  8. GENERIC EFFEXOR [Concomitant]
     Indication: DEPRESSION
  9. HYDROXINE HCL [Concomitant]
     Indication: PRURITUS
  10. GENERIC DILAUDID [Concomitant]
     Indication: PAIN
     Dosage: EVERY 8 HOURS

REACTIONS (3)
  - Laceration [Recovered/Resolved]
  - Localised infection [Recovered/Resolved]
  - Surgery [Recovered/Resolved]
